FAERS Safety Report 7904434-X (Version None)
Quarter: 2011Q4

REPORT INFORMATION
  Report Type: 
  Country: None (occurrence: None)
  Receive Date: 20111109
  Receipt Date: 20111104
  Transmission Date: 20120403
  Serious: Yes (Death)
  Sender: FDA-Public Use
  Company Number: US-PFIZER INC-2011186007

PATIENT
  Sex: Male

DRUGS (2)
  1. REVATIO [Suspect]
     Indication: PULMONARY HYPERTENSION
     Dosage: 20 MG, 3X/DAY
  2. TRACLEER [Suspect]
     Dosage: 125 MG, 2X/DAY
     Route: 048
     Dates: start: 20100107, end: 20110511

REACTIONS (1)
  - PULMONARY ARTERIAL HYPERTENSION [None]
